FAERS Safety Report 12193155 (Version 2)
Quarter: 2016Q2

REPORT INFORMATION
  Report Type: Report from Study
  Country: JP (occurrence: JP)
  Receive Date: 20160319
  Receipt Date: 20160401
  Transmission Date: 20160815
  Serious: Yes (Hospitalization)
  Sender: FDA-Public Use
  Company Number: JP-AMGEN-JPNNI2016034988

PATIENT
  Sex: Female
  Weight: 40 kg

DRUGS (6)
  1. EPERISONE HYDROCHLORIDE [Concomitant]
     Active Substance: EPERISONE HYDROCHLORIDE
     Dosage: 100 MG, QD
     Route: 048
     Dates: start: 20150115
  2. DENOSUMAB [Suspect]
     Active Substance: DENOSUMAB
     Indication: OSTEOPOROSIS
     Dosage: 60 MG, UNK
     Route: 058
     Dates: start: 20131212
  3. CALFINA [Concomitant]
     Active Substance: ALFACALCIDOL
     Dosage: 0.5 MUG, QD
     Route: 048
     Dates: start: 20150527, end: 20150715
  4. LOXOPROFEN SODIUM [Concomitant]
     Active Substance: LOXOPROFEN SODIUM
     Dosage: 60 MG, QD
     Route: 048
     Dates: start: 20150115
  5. CALCIUM LACTATE [Concomitant]
     Active Substance: CALCIUM LACTATE
     Dosage: 2 G, QD
     Route: 048
     Dates: start: 20150527, end: 20150715
  6. DENOTAS [Concomitant]
     Active Substance: CALCIUM CARBONATE\CHOLECALCIFEROL\MAGNESIUM CARBONATE
     Dosage: 2 DF, QD
     Route: 048
     Dates: start: 20131212, end: 20150526

REACTIONS (1)
  - Traumatic fracture [Recovered/Resolved]

NARRATIVE: CASE EVENT DATE: 20150527
